FAERS Safety Report 22259814 (Version 3)
Quarter: 2023Q2

REPORT INFORMATION
  Report Type: Report from Study
  Country: US (occurrence: US)
  Receive Date: 20230427
  Receipt Date: 20230607
  Transmission Date: 20230721
  Serious: No
  Sender: FDA-Public Use
  Company Number: US-002147023-NVSC2023US096089

PATIENT
  Sex: Female

DRUGS (1)
  1. TABRECTA [Suspect]
     Active Substance: CAPMATINIB
     Indication: Lung cancer metastatic
     Dosage: 400 MG, BID
     Route: 048

REACTIONS (7)
  - Flatulence [Not Recovered/Not Resolved]
  - Face oedema [Not Recovered/Not Resolved]
  - Oedema peripheral [Not Recovered/Not Resolved]
  - Dyspnoea [Not Recovered/Not Resolved]
  - Rash erythematous [Unknown]
  - Scratch [Unknown]
  - Pruritus [Unknown]
